FAERS Safety Report 5977728-5 (Version None)
Quarter: 2008Q4

REPORT INFORMATION
  Report Type: 
  Country: None (occurrence: None)
  Receive Date: 20081202
  Receipt Date: 20081202
  Transmission Date: 20090506
  Serious: No
  Sender: FDA-Public Use
  Company Number: None

PATIENT
  Sex: Female

DRUGS (1)
  1. RISPERIDONE [Suspect]
     Dosage: 2MG HS PO
     Route: 048
     Dates: start: 20080920, end: 20081114

REACTIONS (1)
  - BLOOD PROLACTIN INCREASED [None]
